FAERS Safety Report 16361649 (Version 1)
Quarter: 2019Q2

REPORT INFORMATION
  Report Type: Spontaneous
  Country: US (occurrence: US)
  Receive Date: 20190419
  Receipt Date: 20190419
  Transmission Date: 20190711
  Serious: No
  Sender: FDA-Public Use
  Company Number: None

PATIENT
  Age: 70 Year
  Sex: Female

DRUGS (1)
  1. REPATHA [Suspect]
     Active Substance: EVOLOCUMAB
     Dates: start: 20190203, end: 20190203

REACTIONS (3)
  - Gait disturbance [None]
  - Hypersensitivity [None]
  - Speech disorder [None]

NARRATIVE: CASE EVENT DATE: 20190203
